FAERS Safety Report 8160101-1 (Version None)
Quarter: 2012Q1

REPORT INFORMATION
  Report Type: 
  Country: None (occurrence: None)
  Receive Date: 20120223
  Receipt Date: 20120216
  Transmission Date: 20120608
  Serious: Yes (Congenital Anomaly, Other)
  Sender: FDA-Public Use
  Company Number: US-PFIZER INC-2011275894

PATIENT
  Sex: Male
  Weight: 2.99 kg

DRUGS (13)
  1. PREVACID [Concomitant]
     Indication: GASTROOESOPHAGEAL REFLUX DISEASE
     Dosage: 30 MG A DAY
     Route: 064
     Dates: start: 20030331
  2. MAGNESIUM HYDROXIDE TAB [Concomitant]
     Dosage: UNK
     Route: 064
     Dates: start: 20030825
  3. LOTRIMIN [Concomitant]
     Indication: RASH
     Dosage: UNK
     Route: 064
     Dates: start: 20030911
  4. ZOLOFT [Suspect]
     Indication: DEPRESSION
     Dosage: 25 MG A DAY
     Route: 064
     Dates: start: 20030331, end: 20030101
  5. SERTRALINE HYDROCHLORIDE [Suspect]
     Dosage: 100 MG, UNK
     Route: 064
  6. AMBIEN [Concomitant]
     Indication: INSOMNIA
     Dosage: WHEN NECESSARY, UNK
     Route: 064
     Dates: start: 20030331
  7. ZOLOFT [Suspect]
     Indication: ANXIETY
     Dosage: 50 MG A DAY
     Route: 064
  8. MULTI-VITAMINS [Concomitant]
     Dosage: UNK
     Route: 064
  9. METRONIDAZOLE [Concomitant]
     Indication: BACTERIAL INFECTION
     Dosage: 250 MG, 3X/DAY
     Route: 064
     Dates: start: 20030922
  10. SERTRALINE HYDROCHLORIDE [Suspect]
     Dosage: 50 MG, UNK
     Route: 064
  11. PEPCID AC [Concomitant]
     Indication: GASTROOESOPHAGEAL REFLUX DISEASE
     Dosage: UNK
     Route: 064
     Dates: start: 20030331
  12. SILVER NITRATE [Concomitant]
     Dosage: UNK
     Route: 064
     Dates: start: 20030818
  13. IRON [Concomitant]
     Dosage: UNK
     Route: 064

REACTIONS (2)
  - HEART DISEASE CONGENITAL [None]
  - FOETAL EXPOSURE DURING PREGNANCY [None]
